APPROVED DRUG PRODUCT: PAREDRINE
Active Ingredient: HYDROXYAMPHETAMINE HYDROBROMIDE
Strength: 1%
Dosage Form/Route: SOLUTION/DROPS;OPHTHALMIC
Application: N000004 | Product #004
Applicant: PHARMICS INC
Approved: Approved Prior to Jan 1, 1982 | RLD: No | RS: No | Type: DISCN